FAERS Safety Report 21803420 (Version 1)
Quarter: 2023Q1

REPORT INFORMATION
  Report Type: Report from Study
  Country: US (occurrence: US)
  Receive Date: 20230101
  Receipt Date: 20230101
  Transmission Date: 20230418
  Serious: No
  Sender: FDA-Public Use
  Company Number: US-JNJFOC-20221231166

PATIENT
  Age: 70 Year
  Sex: Male
  Weight: 65.830 kg

DRUGS (1)
  1. TREMFYA [Suspect]
     Active Substance: GUSELKUMAB
     Indication: Psoriatic arthropathy
     Dosage: WEEK 4, THEN EVERY 8 WEEKS THEREAFTER.
     Route: 058
     Dates: start: 20221204

REACTIONS (2)
  - Syringe issue [Unknown]
  - Physical product label issue [Unknown]

NARRATIVE: CASE EVENT DATE: 20221204
